FAERS Safety Report 7798795-2 (Version None)
Quarter: 2011Q4

REPORT INFORMATION
  Report Type: 
  Country: None (occurrence: None)
  Receive Date: 20111004
  Receipt Date: 20111004
  Transmission Date: 20120403
  Serious: No
  Sender: FDA-Public Use
  Company Number: None

PATIENT
  Sex: Female
  Weight: 56.6996 kg

DRUGS (4)
  1. BUTRANS [Suspect]
     Indication: BACK PAIN
     Dosage: 10 MCG 1 PATCH/4 DAYS
     Dates: start: 20110609
  2. BUTRANS [Suspect]
     Indication: NECK PAIN
     Dosage: 10 MCG 1 PATCH/4 DAYS
     Dates: start: 20110609
  3. BUTRANS [Suspect]
     Indication: MUSCULOSKELETAL PAIN
     Dosage: 10 MCG 1 PATCH/4 DAYS
     Dates: start: 20110609
  4. BUTRANS [Suspect]
     Indication: FIBROMYALGIA
     Dosage: 10 MCG 1 PATCH/4 DAYS
     Dates: start: 20110609

REACTIONS (17)
  - MUSCLE SPASMS [None]
  - MEMORY IMPAIRMENT [None]
  - TREMOR [None]
  - VISION BLURRED [None]
  - PALPITATIONS [None]
  - COORDINATION ABNORMAL [None]
  - DRUG WITHDRAWAL SYNDROME [None]
  - DEPRESSION [None]
  - CRYING [None]
  - CONFUSIONAL STATE [None]
  - NAUSEA [None]
  - DIZZINESS [None]
  - SINUS DISORDER [None]
  - FEELING HOT [None]
  - ASTHENIA [None]
  - ABDOMINAL PAIN [None]
  - BALANCE DISORDER [None]
